FAERS Safety Report 4883165-7 (Version None)
Quarter: 2006Q1

REPORT INFORMATION
  Report Type: 
  Country: None (occurrence: None)
  Receive Date: 20060117
  Receipt Date: 20060117
  Transmission Date: 20060701
  Serious: Yes (Hospitalization)
  Sender: FDA-Public Use
  Company Number: None

PATIENT
  Age: 60 Year
  Sex: Female
  Weight: 43.9989 kg

DRUGS (1)
  1. OXANDROLONE [Suspect]
     Indication: WEIGHT DECREASED
     Dosage: 10 MG   BID    PO
     Route: 048
     Dates: start: 20051111, end: 20060112

REACTIONS (4)
  - ASTHENIA [None]
  - FATIGUE [None]
  - PAIN [None]
  - VOMITING [None]
